FAERS Safety Report 10302137 (Version 1)
Quarter: 2014Q3

REPORT INFORMATION
  Report Type: Spontaneous
  Country: TN (occurrence: None)
  Receive Date: 20140709
  Receipt Date: 20140709
  Transmission Date: 20150326
  Serious: Yes (Life-Threatening, Other)
  Sender: FDA-Public Use
  Company Number: 2014SEB00009

PATIENT
  Age: 44 Year
  Sex: Female

DRUGS (1)
  1. HYDROCORTISONE (HYDROCORTISONE) UNKNOWN [Suspect]
     Active Substance: HYDROCORTISONE
     Route: 042

REACTIONS (2)
  - Anaphylactic reaction [None]
  - Cardiac arrest [None]
